FAERS Safety Report 7632874-5 (Version None)
Quarter: 2011Q3

REPORT INFORMATION
  Report Type: 
  Country: None (occurrence: None)
  Receive Date: 20110725
  Receipt Date: 20110712
  Transmission Date: 20111222
  Serious: Yes (Hospitalization)
  Sender: FDA-Public Use
  Company Number: PHHY2011AR43046

PATIENT
  Age: 64 Year
  Sex: Male

DRUGS (1)
  1. CLOZAPINE [Suspect]
     Dosage: 300 MG, DAILY
     Dates: end: 20110512

REACTIONS (4)
  - NEUTROPHILIA [None]
  - NEUTROPHIL COUNT INCREASED [None]
  - PNEUMONIA [None]
  - LEUKOCYTOSIS [None]
